FAERS Safety Report 10648481 (Version 2)
Quarter: 2014Q4

REPORT INFORMATION
  Report Type: Spontaneous
  Country: US (occurrence: US)
  Receive Date: 20141212
  Receipt Date: 20141231
  Transmission Date: 20150529
  Serious: No
  Sender: FDA-Public Use
  Company Number: US-SHIRE-US201408100

PATIENT
  Sex: Female

DRUGS (1)
  1. CINRYZE [Suspect]
     Active Substance: HUMAN C1-ESTERASE INHIBITOR
     Indication: HEREDITARY ANGIOEDEMA
     Dosage: 2000 UNITS, OTHER (ONCE MONTHLY AND PRN)
     Route: 042

REACTIONS (4)
  - Prescribed overdose [Not Recovered/Not Resolved]
  - Inappropriate schedule of drug administration [Not Recovered/Not Resolved]
  - Product use issue [Not Recovered/Not Resolved]
  - Unevaluable event [Unknown]
